FAERS Safety Report 23366196 (Version 3)
Quarter: 2024Q1

REPORT INFORMATION
  Report Type: Spontaneous
  Country: US (occurrence: US)
  Receive Date: 20240104
  Receipt Date: 20240126
  Transmission Date: 20240410
  Serious: Yes (Hospitalization, Other)
  Sender: FDA-Public Use
  Company Number: US-Calliditas-2023CAL01725

PATIENT
  Age: 71 Year
  Sex: Female
  Weight: 81.64 kg

DRUGS (1)
  1. TARPEYO [Suspect]
     Active Substance: BUDESONIDE
     Indication: IgA nephropathy
     Route: 048
     Dates: start: 20230527

REACTIONS (8)
  - Peripheral swelling [Not Recovered/Not Resolved]
  - Renal impairment [Not Recovered/Not Resolved]
  - End stage renal disease [Not Recovered/Not Resolved]
  - Hypertension [Recovered/Resolved]
  - Vomiting [Recovered/Resolved]
  - Diarrhoea [Recovered/Resolved]
  - Blood creatinine increased [Not Recovered/Not Resolved]
  - Glomerular filtration rate decreased [Not Recovered/Not Resolved]

NARRATIVE: CASE EVENT DATE: 20231001
